FAERS Safety Report 18915407 (Version 1)
Quarter: 2021Q1

REPORT INFORMATION
  Report Type: Spontaneous
  Country: DE (occurrence: DE)
  Receive Date: 20210219
  Receipt Date: 20210219
  Transmission Date: 20210420
  Serious: Yes (Death, Hospitalization, Other)
  Sender: FDA-Public Use
  Company Number: DE-ASTRAZENECA-2021A060474

PATIENT
  Age: 64 Year
  Sex: Male

DRUGS (1)
  1. TAGRISSO [Suspect]
     Active Substance: OSIMERTINIB
     Dosage: STANDARD DOSAGE UNKNOWN
     Route: 048
     Dates: start: 20190806

REACTIONS (6)
  - Fall [Fatal]
  - Dyspnoea [Fatal]
  - Emphysema [Fatal]
  - Renal failure [Fatal]
  - Pleural effusion [Fatal]
  - C-reactive protein increased [Fatal]

NARRATIVE: CASE EVENT DATE: 201912
